FAERS Safety Report 8429652-6 (Version None)
Quarter: 2012Q2

REPORT INFORMATION
  Report Type: 
  Country: None (occurrence: None)
  Receive Date: 20120612
  Receipt Date: 20120607
  Transmission Date: 20120825
  Serious: Yes (Other)
  Sender: FDA-Public Use
  Company Number: US-TEVA-338340USA

PATIENT
  Sex: Male

DRUGS (4)
  1. DIAZEPAM [Concomitant]
     Dosage: ONE BID PRN AND 3 AT HS
  2. TOPIRAMATE [Concomitant]
     Dosage: 400 MILLIGRAM;
  3. QUETIAPINE FUMARATE [Suspect]
  4. LITHIUM [Concomitant]
     Dosage: 900 MILLIGRAM;

REACTIONS (2)
  - THROAT TIGHTNESS [None]
  - URTICARIA [None]
